FAERS Safety Report 21448327 (Version 1)
Quarter: 2022Q4

REPORT INFORMATION
  Report Type: Report from Study
  Country: US (occurrence: US)
  Receive Date: 20221013
  Receipt Date: 20221013
  Transmission Date: 20230112
  Serious: Yes (Other)
  Sender: FDA-Public Use
  Company Number: US-ABBVIE-4151271

PATIENT
  Sex: Female

DRUGS (8)
  1. HUMIRA [Suspect]
     Active Substance: ADALIMUMAB
     Indication: Crohn^s disease
     Route: 058
  2. SYMBICORT AER 160-4.5MCG [Concomitant]
     Indication: Product used for unknown indication
  3. OMEPRAZOLE CPD 40MG [Concomitant]
     Indication: Product used for unknown indication
  4. VITAMIN D (C TAB 25 MCG1) [Concomitant]
     Indication: Product used for unknown indication
  5. TOPAMAX TAB 200MG [Concomitant]
     Indication: Product used for unknown indication
  6. FOLIC ACID TAB 800MCG [Concomitant]
     Indication: Product used for unknown indication
  7. VITAMIN C POW [Concomitant]
     Indication: Product used for unknown indication
  8. SYNTHROID TAB 300MCG [Concomitant]
     Indication: Product used for unknown indication

REACTIONS (3)
  - Stem cell transplant [Unknown]
  - Palpitations [Unknown]
  - Vomiting [Unknown]
